FAERS Safety Report 6322058-5 (Version None)
Quarter: 2009Q3

REPORT INFORMATION
  Report Type: 
  Country: None (occurrence: None)
  Receive Date: 20090824
  Receipt Date: 20090818
  Transmission Date: 20100115
  Serious: Yes (Death, Hospitalization)
  Sender: FDA-Public Use
  Company Number: AR-ASTRAZENECA-2009SE08767

PATIENT
  Age: 72 Year
  Sex: Female

DRUGS (4)
  1. ROSUVAST [Suspect]
     Indication: HYPERCHOLESTEROLAEMIA
     Route: 048
  2. ROSUVAST [Suspect]
     Indication: CAROTID ENDARTERECTOMY
     Route: 048
  3. VALSARTAN [Concomitant]
  4. CARVEDILOL [Concomitant]

REACTIONS (5)
  - ANOREXIA NERVOSA [None]
  - ASTHENIA [None]
  - CHOLURIA [None]
  - HEPATIC ENZYME INCREASED [None]
  - JAUNDICE [None]
